FAERS Safety Report 18129981 (Version 1)
Quarter: 2020Q3

REPORT INFORMATION
  Report Type: Spontaneous
  Country: CA (occurrence: CA)
  Receive Date: 20200810
  Receipt Date: 20200810
  Transmission Date: 20201103
  Serious: Yes (Hospitalization)
  Sender: FDA-Public Use
  Company Number: CA-ACCORD-194498

PATIENT
  Age: 83 Year
  Sex: Female

DRUGS (39)
  1. CELEBREX [Suspect]
     Active Substance: CELECOXIB
     Indication: RHEUMATOID ARTHRITIS
     Route: 046
  2. PANTOPRAZOLE [Concomitant]
     Active Substance: PANTOPRAZOLE
  3. ASCORBIC ACID. [Concomitant]
     Active Substance: ASCORBIC ACID
  4. THIAMINE. [Concomitant]
     Active Substance: THIAMINE
  5. METHOTREXATE. [Suspect]
     Active Substance: METHOTREXATE
     Indication: RHEUMATOID ARTHRITIS
     Dosage: 1 EVERY 1 WEEKS
     Route: 058
  6. HYDROXYCHLOROQUINE [Suspect]
     Active Substance: HYDROXYCHLOROQUINE
     Indication: RHEUMATOID ARTHRITIS
     Dosage: 1 EVERY 1 DAYS
     Route: 065
  7. ENBREL [Suspect]
     Active Substance: ETANERCEPT
     Indication: RHEUMATOID ARTHRITIS
     Dosage: 1 EVERY 1 WEEKS
     Route: 065
  8. TOCOPHEROL [Concomitant]
     Active Substance: TOCOPHEROL
     Dosage: D?ALPHA TOCOPHEROL
  9. LOMOTIL [Concomitant]
     Active Substance: ATROPINE SULFATE\DIPHENOXYLATE HYDROCHLORIDE
  10. RETINOL [Concomitant]
     Active Substance: RETINOL
  11. THIAMINE. [Concomitant]
     Active Substance: THIAMINE
  12. GABAPENTIN. [Suspect]
     Active Substance: GABAPENTIN
     Indication: PRODUCT USED FOR UNKNOWN INDICATION
     Dosage: 2 EVERY 1 DAYS
     Route: 048
  13. MYOCHRYSINE [Suspect]
     Active Substance: GOLD SODIUM THIOMALATE
     Indication: RHEUMATOID ARTHRITIS
     Dosage: 1 EVERY 3 WEEKS, SOLUTION INTRAMUSCULAR
     Route: 030
  14. CYANOCOBALAMIN. [Concomitant]
     Active Substance: CYANOCOBALAMIN
  15. ERGOCALCIFEROL. [Concomitant]
     Active Substance: ERGOCALCIFEROL
  16. NASONEX [Concomitant]
     Active Substance: MOMETASONE FUROATE
  17. NICOTINAMIDE [Concomitant]
     Active Substance: NIACINAMIDE
  18. FENTANYL. [Suspect]
     Active Substance: FENTANYL
     Indication: PRODUCT USED FOR UNKNOWN INDICATION
     Route: 065
  19. ACTEMRA [Suspect]
     Active Substance: TOCILIZUMAB
     Indication: RHEUMATOID ARTHRITIS
     Dosage: 1 EVERY 1 MONTHS
     Route: 042
  20. PYRIDOXINE [Concomitant]
     Active Substance: PYRIDOXINE
  21. SULFASALAZINE. [Suspect]
     Active Substance: SULFASALAZINE
     Indication: RHEUMATOID ARTHRITIS
     Dosage: 1 EVERY 1 DAYS
     Route: 048
  22. BIOTIN [Concomitant]
     Active Substance: BIOTIN
  23. NORTRIPTYLINE [Concomitant]
     Active Substance: NORTRIPTYLINE
  24. PREDNISONE. [Concomitant]
     Active Substance: PREDNISONE
  25. RETINOL [Concomitant]
     Active Substance: RETINOL
  26. RIBOFLAVIN [Concomitant]
     Active Substance: RIBOFLAVIN
  27. TRAZODONE [Concomitant]
     Active Substance: TRAZODONE HYDROCHLORIDE
  28. XELJANZ [Concomitant]
     Active Substance: TOFACITINIB CITRATE
  29. ORENCIA [Suspect]
     Active Substance: ABATACEPT
     Indication: RHEUMATOID ARTHRITIS
     Dosage: 1 EVERY 3 WEEKS
     Route: 042
  30. ARAVA [Suspect]
     Active Substance: LEFLUNOMIDE
     Indication: PRODUCT USED FOR UNKNOWN INDICATION
     Dosage: 1 EVERY 1 MONTHS
     Route: 048
  31. ESOMEPRAZOLE/ESOMEPRAZOLE MAGNESIUM/ESOMEPRAZOLE SODIUM [Concomitant]
     Active Substance: ESOMEPRAZOLE
  32. IRON [Concomitant]
     Active Substance: IRON
  33. IRON [Concomitant]
     Active Substance: IRON
  34. LOPERAMIDE [Concomitant]
     Active Substance: LOPERAMIDE
  35. OXYCODONE [Suspect]
     Active Substance: OXYCODONE
     Indication: PRODUCT USED FOR UNKNOWN INDICATION
     Route: 065
  36. FOLIC ACID. [Concomitant]
     Active Substance: FOLIC ACID
  37. RISEDRONIC ACID [Concomitant]
     Active Substance: RISEDRONIC ACID
  38. TYLENOL [Concomitant]
     Active Substance: ACETAMINOPHEN
  39. ASCORBIC ACID. [Concomitant]
     Active Substance: ASCORBIC ACID

REACTIONS (24)
  - Blood potassium increased [Unknown]
  - Epigastric discomfort [Unknown]
  - Hypersensitivity [Unknown]
  - Nausea [Unknown]
  - Skin lesion [Unknown]
  - Deafness neurosensory [Unknown]
  - Dry eye [Unknown]
  - Gastrointestinal disorder [Unknown]
  - Osteoarthritis [Unknown]
  - Osteopenia [Unknown]
  - Blood magnesium increased [Unknown]
  - Pleural thickening [Unknown]
  - Diarrhoea [Unknown]
  - Drug intolerance [Unknown]
  - Pleural fibrosis [Unknown]
  - Drug ineffective [Unknown]
  - Cyst [Unknown]
  - Drug hypersensitivity [Unknown]
  - Blood creatinine increased [Unknown]
  - Presbyacusis [Unknown]
  - Fatigue [Unknown]
  - Infection [Unknown]
  - Renal impairment [Unknown]
  - Treatment failure [Unknown]
